FAERS Safety Report 6054342-7 (Version None)
Quarter: 2009Q1

REPORT INFORMATION
  Report Type: 
  Country: None (occurrence: None)
  Receive Date: 20090127
  Receipt Date: 20090115
  Transmission Date: 20090719
  Serious: Yes (Hospitalization)
  Sender: FDA-Public Use
  Company Number: FR-WYE-G02939109

PATIENT
  Sex: Female

DRUGS (10)
  1. EFFEXOR [Suspect]
     Indication: DEPRESSION
     Route: 048
     Dates: start: 20080701
  2. LYRICA [Suspect]
     Indication: PARTIAL SEIZURES
     Route: 048
     Dates: start: 20060901
  3. ANAFRANIL [Suspect]
     Indication: NEURALGIA
     Route: 048
     Dates: start: 20070701
  4. TYSABRI [Suspect]
     Indication: MULTIPLE SCLEROSIS
     Dosage: 300 MG EVERY 1 CYC
     Route: 042
     Dates: start: 20071127
  5. NOZINAN [Suspect]
     Indication: DEPRESSION
     Route: 048
     Dates: start: 20080301
  6. LASILIX [Suspect]
     Indication: OEDEMA PERIPHERAL
     Route: 048
     Dates: start: 20080401
  7. TRANXENE [Suspect]
     Indication: ANXIETY
     Route: 048
     Dates: start: 20080801
  8. TAHOR [Suspect]
     Indication: HYPERCHOLESTEROLAEMIA
     Dosage: UNKNOWN
     Route: 048
  9. RIVOTRIL [Suspect]
     Indication: NEURALGIA
     Route: 048
     Dates: start: 20030601
  10. SEROPLEX [Suspect]
     Indication: DEPRESSION
     Route: 048
     Dates: start: 20080301

REACTIONS (3)
  - ASPHYXIA [None]
  - INTENTIONAL OVERDOSE [None]
  - SUICIDE ATTEMPT [None]
